FAERS Safety Report 15470778 (Version 3)
Quarter: 2018Q4

REPORT INFORMATION
  Report Type: Spontaneous
  Country: US (occurrence: US)
  Receive Date: 20181005
  Receipt Date: 20181218
  Transmission Date: 20190205
  Serious: Yes (Hospitalization, Disabling, Other)
  Sender: FDA-Public Use
  Company Number: US-OTSUKA-2018_020512

PATIENT
  Age: 24 Year
  Sex: Male

DRUGS (5)
  1. ABILIFY [Suspect]
     Active Substance: ARIPIPRAZOLE
     Indication: ANXIETY
     Dosage: 10 MG, QD
     Route: 065
     Dates: start: 20031010, end: 20151128
  2. ABILIFY [Suspect]
     Active Substance: ARIPIPRAZOLE
     Indication: MAJOR DEPRESSION
     Dosage: 5 MG, QD
     Route: 065
     Dates: start: 20031010
  3. DEPAKOTE [Concomitant]
     Active Substance: DIVALPROEX SODIUM
     Indication: PRODUCT USED FOR UNKNOWN INDICATION
     Dosage: UNK
     Route: 065
  4. ARIPIPRAZOLE. [Concomitant]
     Active Substance: ARIPIPRAZOLE
     Indication: PRODUCT USED FOR UNKNOWN INDICATION
     Dosage: UNK
     Route: 065
     Dates: start: 201505, end: 201609
  5. ZOLOFT [Concomitant]
     Active Substance: SERTRALINE HYDROCHLORIDE
     Indication: PRODUCT USED FOR UNKNOWN INDICATION
     Dosage: UNK
     Route: 065

REACTIONS (27)
  - Decreased appetite [Unknown]
  - Anxiety [Unknown]
  - Mental disorder [Unknown]
  - Disability [Unknown]
  - Suicide attempt [Recovered/Resolved]
  - Irritability [Unknown]
  - Theft [Unknown]
  - Anhedonia [Unknown]
  - Asthenia [Unknown]
  - Suicidal ideation [Recovered/Resolved]
  - Sexual dysfunction [Recovered/Resolved]
  - Pain [Unknown]
  - Gambling disorder [Recovered/Resolved]
  - Restlessness [Unknown]
  - Economic problem [Unknown]
  - Injury [Unknown]
  - Sleep disorder [Unknown]
  - Obsessive-compulsive disorder [Unknown]
  - Compulsive shopping [Recovered/Resolved]
  - Loss of employment [Unknown]
  - Bankruptcy [Unknown]
  - Shoplifting [Unknown]
  - Condition aggravated [Unknown]
  - Compulsive sexual behaviour [Recovered/Resolved]
  - Impulsive behaviour [Unknown]
  - Emotional distress [Unknown]
  - Product use in unapproved indication [Unknown]

NARRATIVE: CASE EVENT DATE: 20031010
